FAERS Safety Report 8973865 (Version 1)
Quarter: 2012Q4

REPORT INFORMATION
  Report Type: 
  Country: PR (occurrence: PR)
  Receive Date: 20121218
  Receipt Date: 20121218
  Transmission Date: 20130627
  Serious: No
  Sender: FDA-Public Use
  Company Number: PR-BRISTOL-MYERS SQUIBB COMPANY-16897209

PATIENT
  Sex: Female

DRUGS (2)
  1. ABILIFY [Suspect]
  2. EFFEXOR [Suspect]

REACTIONS (1)
  - Amenorrhoea [Unknown]
